FAERS Safety Report 4745511-4 (Version None)
Quarter: 2005Q3

REPORT INFORMATION
  Report Type: 
  Country: None (occurrence: None)
  Receive Date: 20050815
  Receipt Date: 20050718
  Transmission Date: 20060218
  Serious: Yes (Hospitalization, Disabling, Other)
  Sender: FDA-Public Use
  Company Number: US-MERCK-0507USA03061

PATIENT
  Age: 68 Year
  Sex: Male
  Weight: 77 kg

DRUGS (4)
  1. VIOXX [Suspect]
     Indication: PAIN
     Route: 048
     Dates: start: 20000101, end: 20040301
  2. VIOXX [Suspect]
     Route: 048
     Dates: start: 20000101, end: 20040301
  3. VIOXX [Suspect]
     Indication: FEELING OF RELAXATION
     Route: 048
     Dates: start: 20000101, end: 20040301
  4. VIOXX [Suspect]
     Route: 048
     Dates: start: 20000101, end: 20040301

REACTIONS (13)
  - BACK DISORDER [None]
  - BLADDER DISORDER [None]
  - CARDIAC DISORDER [None]
  - CEREBROVASCULAR ACCIDENT [None]
  - CORONARY ARTERY DISEASE [None]
  - CORONARY ARTERY OCCLUSION [None]
  - DEPRESSION [None]
  - EAR PAIN [None]
  - EMOTIONAL DISORDER [None]
  - GASTROINTESTINAL DISORDER [None]
  - MENTAL DISORDER [None]
  - MYOCARDIAL INFARCTION [None]
  - PRESCRIBED OVERDOSE [None]
